FAERS Safety Report 11516918 (Version 1)
Quarter: 2015Q3

REPORT INFORMATION
  Report Type: Spontaneous
  Country: US (occurrence: US)
  Receive Date: 20150917
  Receipt Date: 20150917
  Transmission Date: 20151125
  Serious: Yes (Other)
  Sender: FDA-Public Use
  Company Number: US-TAKEDA-2014TUS008677

PATIENT

DRUGS (3)
  1. ACTOS [Suspect]
     Active Substance: PIOGLITAZONE HYDROCHLORIDE
     Dosage: 15 MG, UNK
     Route: 048
     Dates: start: 20130426, end: 20130526
  2. ACTOS [Suspect]
     Active Substance: PIOGLITAZONE HYDROCHLORIDE
     Indication: TYPE 2 DIABETES MELLITUS
     Dosage: 45 MG, UNK
     Route: 048
     Dates: start: 20110321, end: 20121119
  3. ACTOS [Suspect]
     Active Substance: PIOGLITAZONE HYDROCHLORIDE
     Dosage: 45 MG, UNK
     Route: 048
     Dates: start: 20121120, end: 20130425

REACTIONS (3)
  - Metastatic carcinoma of the bladder [Unknown]
  - Metastases to prostate [Unknown]
  - Metastases to urinary tract [Unknown]

NARRATIVE: CASE EVENT DATE: 201209
